FAERS Safety Report 7876290-X (Version None)
Quarter: 2011Q4

REPORT INFORMATION
  Report Type: 
  Country: None (occurrence: None)
  Receive Date: 20111031
  Receipt Date: 20111026
  Transmission Date: 20120403
  Serious: Yes (Hospitalization, Disabling, Other)
  Sender: FDA-Public Use
  Company Number: US-MERCK-1106USA01821

PATIENT
  Age: 49 Year
  Sex: Female

DRUGS (8)
  1. OXYCODONE [Concomitant]
     Route: 065
  2. FOSAMAX [Suspect]
     Indication: OSTEOPENIA
     Route: 048
     Dates: start: 20011001, end: 20080401
  3. FOSAMAX [Suspect]
     Indication: OSTEOPOROSIS
     Route: 048
     Dates: start: 20011001, end: 20080401
  4. CALCIUM CITRATE [Concomitant]
     Route: 065
     Dates: start: 19990101
  5. VITAMIN D (UNSPECIFIED) [Concomitant]
     Route: 065
     Dates: start: 19990101
  6. VITAMINS (UNSPECIFIED) [Concomitant]
     Route: 065
     Dates: start: 19990101
  7. OMEGA-3 MARINE TRIGLYCERIDES [Concomitant]
     Route: 065
     Dates: start: 19990101
  8. ASPIRIN [Concomitant]
     Route: 065

REACTIONS (5)
  - ANXIETY [None]
  - FEMUR FRACTURE [None]
  - RASH [None]
  - OSTEOPETROSIS [None]
  - BLOOD CHOLESTEROL INCREASED [None]
